FAERS Safety Report 25764614 (Version 1)
Quarter: 2025Q3

REPORT INFORMATION
  Report Type: Spontaneous
  Country: US (occurrence: US)
  Receive Date: 20250905
  Receipt Date: 20250905
  Transmission Date: 20251020
  Serious: No
  Sender: DOMPE FARMACEUTICI
  Company Number: US-FARMAPROD-202502-0379

PATIENT
  Sex: Male

DRUGS (10)
  1. OXERVATE [Suspect]
     Active Substance: CENEGERMIN-BKBJ
     Indication: Neurotrophic keratopathy
     Route: 047
     Dates: start: 20241219
  2. DIFLUPREDNATE [Concomitant]
     Active Substance: DIFLUPREDNATE
  3. BRIMONIDINE TARTRATE [Concomitant]
     Active Substance: BRIMONIDINE TARTRATE
     Indication: Glaucoma
     Dosage: ADMINISTERED IN THE LEFT EYE.
  4. ROCKLATAN [Concomitant]
     Active Substance: LATANOPROST\NETARSUDIL MESYLATE
  5. NIFEDIPINE [Concomitant]
     Active Substance: NIFEDIPINE
  6. CARVEDILOL [Concomitant]
     Active Substance: CARVEDILOL
  7. VALSARTAN [Concomitant]
     Active Substance: VALSARTAN
  8. DORZOLAMIDE HYDROCHLORIDE [Concomitant]
     Active Substance: DORZOLAMIDE HYDROCHLORIDE
  9. COSOPT [Concomitant]
     Active Substance: DORZOLAMIDE HYDROCHLORIDE\TIMOLOL MALEATE
     Dosage: 2%-5%; ADMINISTERED IN THE LEFT EYE.
  10. LATANOPROST [Concomitant]
     Active Substance: LATANOPROST
     Dosage: ADMINISTERED EVERY NIGHT AFTER BEDTIME IN THE LEFT EYE.

REACTIONS (1)
  - Trabeculectomy [Recovered/Resolved]
